FAERS Safety Report 25823926 (Version 1)
Quarter: 2025Q3

REPORT INFORMATION
  Report Type: Spontaneous
  Country: US (occurrence: US)
  Receive Date: 20250919
  Receipt Date: 20250919
  Transmission Date: 20251021
  Serious: No
  Sender: MERCK SHARP & DOHME LLC
  Company Number: US-009507513-2331296

PATIENT
  Age: 88 Year
  Sex: Male

DRUGS (1)
  1. DIFICID [Suspect]
     Active Substance: FIDAXOMICIN
     Indication: Clostridium difficile infection
     Dosage: STRENGTH: 200 MG; FULL 10-DAY COURSE COMPLETED
     Route: 048
     Dates: start: 20250907, end: 20250916

REACTIONS (2)
  - Drug ineffective [Unknown]
  - Product prescribing issue [Unknown]

NARRATIVE: CASE EVENT DATE: 20250901
